FAERS Safety Report 25957195 (Version 1)
Quarter: 2025Q4

REPORT INFORMATION
  Report Type: Spontaneous
  Country: US (occurrence: US)
  Receive Date: 20251024
  Receipt Date: 20251024
  Transmission Date: 20260117
  Serious: No
  Sender: MILLICENT HOLDINGS
  Company Number: US-Millicent Holdings Ltd.-MILL20250305

PATIENT
  Age: 57 Year
  Sex: Female

DRUGS (9)
  1. FEMRING [Suspect]
     Active Substance: ESTRADIOL ACETATE
     Indication: Hormone replacement therapy
     Dosage: 0.05 MG / DAY
     Route: 067
     Dates: start: 2022, end: 20251014
  2. FEMRING [Suspect]
     Active Substance: ESTRADIOL ACETATE
     Indication: Hot flush
     Dosage: 0.05 MG/DAY
     Route: 067
     Dates: start: 20251014
  3. FEMRING [Suspect]
     Active Substance: ESTRADIOL ACETATE
     Indication: Night sweats
  4. FEMRING [Suspect]
     Active Substance: ESTRADIOL ACETATE
     Indication: Hormone replacement therapy
     Dosage: 0.10 MG / DAY
     Route: 067
  5. FEMRING [Suspect]
     Active Substance: ESTRADIOL ACETATE
     Indication: Hot flush
  6. FEMRING [Suspect]
     Active Substance: ESTRADIOL ACETATE
     Indication: Night sweats
  7. UNSPECIFIED INGREDIENT [Suspect]
     Active Substance: UNSPECIFIED INGREDIENT
     Indication: Sinusitis
     Dosage: UNKNOWN
     Route: 048
  8. UNSPECIFIED INGREDIENT [Suspect]
     Active Substance: UNSPECIFIED INGREDIENT
     Indication: Sinusitis
     Dosage: UNKNOWN
     Route: 048
  9. ESTRADIOL TRANSDERMAL SYSTEM [Concomitant]
     Active Substance: ESTRADIOL
     Route: 062

REACTIONS (18)
  - Genital rash [Not Recovered/Not Resolved]
  - Vulvovaginal disorder [Recovering/Resolving]
  - Bacterial vaginosis [Recovered/Resolved]
  - Vulvovaginal mycotic infection [Recovered/Resolved]
  - Urinary tract infection [Recovered/Resolved]
  - Rash erythematous [Not Recovered/Not Resolved]
  - Vulvovaginal burning sensation [Unknown]
  - Vulvovaginal pruritus [Not Recovered/Not Resolved]
  - Vulvovaginal swelling [Not Recovered/Not Resolved]
  - Skin erosion [Not Recovered/Not Resolved]
  - Vulvovaginal discomfort [Unknown]
  - Hypersensitivity [Not Recovered/Not Resolved]
  - Hair growth abnormal [Unknown]
  - Breast enlargement [Unknown]
  - Weight increased [Unknown]
  - Migraine [Unknown]
  - Alopecia [Unknown]
  - Blood oestrogen decreased [Unknown]

NARRATIVE: CASE EVENT DATE: 20240601
